FAERS Safety Report 16368148 (Version 8)
Quarter: 2020Q1

REPORT INFORMATION
  Report Type: Spontaneous
  Country: US (occurrence: US)
  Receive Date: 20190529
  Receipt Date: 20200110
  Transmission Date: 20200409
  Serious: Yes (Hospitalization, Other)
  Sender: FDA-Public Use
  Company Number: US-PFIZER INC-2019225607

PATIENT
  Age: 81 Year
  Sex: Female
  Weight: 49.9 kg

DRUGS (6)
  1. DEPO-ESTRADIOL [Suspect]
     Active Substance: ESTRADIOL CYPIONATE
     Indication: ASTHENIA
     Dosage: 5 MG/ML, EVERY 3 WEEKS (5MG IN 1CC INTRAMUSCULAR INJECTION IN UPPER QUAD OF THE HIPS)
     Route: 030
  2. DEPO-ESTRADIOL [Suspect]
     Active Substance: ESTRADIOL CYPIONATE
     Indication: ARTHRITIS
     Dosage: 5 MG, EVERY TWO WEEKS
     Route: 030
  3. DEPO-ESTRADIOL [Suspect]
     Active Substance: ESTRADIOL CYPIONATE
     Indication: MUSCLE SPASMS
     Dosage: ABOUT EVERY 3 WEEKS
  4. DIAZEPAM. [Concomitant]
     Active Substance: DIAZEPAM
     Dosage: UNK
  5. DEPO-ESTRADIOL [Suspect]
     Active Substance: ESTRADIOL CYPIONATE
     Indication: BONE DENSITY ABNORMAL
     Dosage: UNK, EVERY 2 WEEKS
     Route: 030
  6. DEPO-ESTRADIOL [Suspect]
     Active Substance: ESTRADIOL CYPIONATE
     Indication: HYSTERECTOMY
     Dosage: 6 ML, UNK

REACTIONS (8)
  - Body height decreased [Unknown]
  - Arthritis [Unknown]
  - Pain [Unknown]
  - Drug effective for unapproved indication [Unknown]
  - Body temperature decreased [Unknown]
  - Off label use [Unknown]
  - Nasopharyngitis [Unknown]
  - Hypoacusis [Unknown]
